FAERS Safety Report 8634360 (Version 3)
Quarter: 2012Q4

REPORT INFORMATION
  Report Type: 
  Country: DE (occurrence: DE)
  Receive Date: 20120626
  Receipt Date: 20121126
  Transmission Date: 20130627
  Serious: Yes (Hospitalization, Other)
  Sender: FDA-Public Use
  Company Number: DE-ASTELLAS-2012US005599

PATIENT
  Sex: Male

DRUGS (3)
  1. TARCEVA [Suspect]
     Indication: PANCREATIC CARCINOMA METASTATIC
     Dosage: 100 mg, Unknown/D
     Route: 048
     Dates: start: 20120528
  2. TARCEVA [Suspect]
     Dosage: 150 mg, UID/QD
     Route: 048
  3. GEMCITABINE                        /01215702/ [Concomitant]
     Indication: PANCREATIC CARCINOMA
     Dosage: 1800 mg, Weekly
     Route: 042
     Dates: start: 201203

REACTIONS (3)
  - Hot flush [Not Recovered/Not Resolved]
  - Rash generalised [Unknown]
  - Acne [Recovered/Resolved]
